FAERS Safety Report 16055653 (Version 1)
Quarter: 2019Q1

REPORT INFORMATION
  Report Type: Spontaneous
  Country: US (occurrence: US)
  Receive Date: 20190208
  Receipt Date: 20190208
  Transmission Date: 20190418
  Serious: No
  Sender: FDA-Public Use
  Company Number: None

PATIENT
  Age: 71 Year
  Sex: Male
  Weight: 252 kg

DRUGS (1)
  1. VANCOMYCIN [Suspect]
     Active Substance: VANCOMYCIN
     Indication: POST PROCEDURAL INFECTION
     Route: 042
     Dates: start: 20180618, end: 20180730

REACTIONS (4)
  - Urticaria [None]
  - Pruritus [None]
  - Rash [None]
  - Renal tubular necrosis [None]

NARRATIVE: CASE EVENT DATE: 20180809
